FAERS Safety Report 8556847-3 (Version None)
Quarter: 2012Q3

REPORT INFORMATION
  Report Type: 
  Country: None (occurrence: None)
  Receive Date: 20120801
  Receipt Date: 20120725
  Transmission Date: 20120928
  Serious: Yes (Life-Threatening, Hospitalization)
  Sender: FDA-Public Use
  Company Number: FR-VERTEX PHARMACEUTICALS INC.-000000000000000292

PATIENT
  Sex: Female
  Weight: 66.5 kg

DRUGS (12)
  1. PEGASYS [Concomitant]
     Indication: HEPATITIS C
     Route: 058
     Dates: start: 20111017, end: 20120105
  2. NOCTAMIDE [Concomitant]
     Indication: INSOMNIA
     Dates: start: 20030101
  3. VITAMIN D [Concomitant]
     Indication: PRODUCT USED FOR UNKNOWN INDICATION
     Dosage: DOSAGE FORM: AMPOULES
  4. COPEGUS [Concomitant]
     Indication: HEPATITIS C
     Dates: start: 20111017, end: 20120105
  5. DILTIAZEM HCL [Concomitant]
     Indication: HYPERTENSION
     Dates: start: 20020101
  6. EFFEXOR [Concomitant]
     Indication: DEPRESSION
  7. NEORECORMON [Concomitant]
     Indication: ANAEMIA
     Dates: start: 20111205, end: 20120106
  8. ARIMIDEX [Concomitant]
     Indication: BREAST CANCER
  9. EFFEXOR [Concomitant]
     Dates: start: 20020101
  10. INCIVO (TELAPREVIR) [Suspect]
     Indication: HEPATITIS C
     Dosage: DOSAGE FORM: TABLET
     Route: 048
     Dates: start: 20111017, end: 20111231
  11. DILTIAZEM HCL [Concomitant]
     Indication: PROPHYLAXIS
  12. DILTIAZEM HCL [Concomitant]

REACTIONS (3)
  - DRUG ERUPTION [None]
  - DRUG RASH WITH EOSINOPHILIA AND SYSTEMIC SYMPTOMS [None]
  - ANAEMIA [None]
